FAERS Safety Report 8801009 (Version 2)
Quarter: 2012Q4

REPORT INFORMATION
  Report Type: 
  Country: FR (occurrence: FR)
  Receive Date: 20120920
  Receipt Date: 20121009
  Transmission Date: 20130627
  Serious: Yes (Other)
  Sender: FDA-Public Use
  Company Number: FR-UCBSA-066068

PATIENT
  Age: 52 Year
  Sex: Female

DRUGS (7)
  1. CIMZIA [Suspect]
     Indication: ANKYLOSING SPONDYLITIS
     Route: 058
     Dates: start: 201203, end: 2012
  2. CIMZIA [Suspect]
     Indication: ANKYLOSING SPONDYLITIS
     Dosage: UNKNOWN
  3. METHOTREXATE [Concomitant]
     Indication: ANKYLOSING SPONDYLITIS
     Dates: start: 1996
  4. SPECIAFOLDINE [Concomitant]
     Indication: ANKYLOSING SPONDYLITIS
     Dates: start: 1996
  5. PREVISCAN [Concomitant]
     Indication: PHLEBITIS
     Dates: start: 1999
  6. SOTALEX [Concomitant]
     Indication: TACHYCARDIA
  7. REMICADE [Concomitant]
     Indication: ANKYLOSING SPONDYLITIS
     Dosage: 5 MG/KG
     Dates: start: 201006, end: 201203

REACTIONS (2)
  - Phlebitis [Not Recovered/Not Resolved]
  - Nausea [Unknown]
